FAERS Safety Report 4692240-1 (Version None)
Quarter: 2005Q2

REPORT INFORMATION
  Report Type: 
  Country: None (occurrence: None)
  Receive Date: 20050614
  Receipt Date: 20050530
  Transmission Date: 20051028
  Serious: Yes (Other)
  Sender: FDA-Public Use
  Company Number: FR-2005-005873

PATIENT
  Age: 32 Year
  Sex: Female

DRUGS (6)
  1. BETAFERON (INTERFERON BETA-1B) INJECTION, 250UG [Suspect]
     Indication: MULTIPLE SCLEROSIS
     Dosage: 250 UG, EVERY 2 D, SUBCUTANEOUS
     Route: 058
     Dates: start: 19960501, end: 19971201
  2. BETAFERON (INTERFERON BETA-1B) INJECTION, 250UG [Suspect]
     Indication: MULTIPLE SCLEROSIS
     Dosage: 250 UG, EVERY 2 D, SUBCUTANEOUS
     Route: 058
     Dates: start: 20020201, end: 20030101
  3. IMOVANE (ZOPICLONE) [Suspect]
     Indication: SLEEP DISORDER
     Dosage: AS REQ'D, ORAL
     Route: 048
  4. DOLIPRANE [Concomitant]
  5. RANITIDINE HYDROCHLORIDE [Concomitant]
  6. MAALOX (MAGNESIUM HYDROXIDE, ALGEDRATE) [Concomitant]

REACTIONS (4)
  - DEREALISATION [None]
  - HALLUCINATION [None]
  - HIATUS HERNIA [None]
  - INFLUENZA LIKE ILLNESS [None]
